FAERS Safety Report 9657127 (Version 3)
Quarter: 2014Q1

REPORT INFORMATION
  Report Type: Spontaneous
  Country: GB (occurrence: GB)
  Receive Date: 20131030
  Receipt Date: 20140110
  Transmission Date: 20141002
  Serious: Yes (Life-Threatening, Hospitalization, Other)
  Sender: FDA-Public Use
  Company Number: GB-ROCHE-1295539

PATIENT
  Age: 8 Year
  Sex: Male
  Weight: 34.5 kg

DRUGS (4)
  1. CEFTRIAXONE [Suspect]
     Indication: MENINGITIS
     Route: 042
     Dates: start: 20131014, end: 20131016
  2. PARACETAMOL [Concomitant]
     Indication: PAIN
     Route: 048
  3. PARACETAMOL [Concomitant]
     Indication: PYREXIA
  4. IBUPROFEN [Concomitant]

REACTIONS (4)
  - Tubulointerstitial nephritis [Not Recovered/Not Resolved]
  - Urine output decreased [Unknown]
  - Renal failure acute [Recovered/Resolved]
  - Blood creatinine increased [Recovering/Resolving]
